FAERS Safety Report 5851780-X (Version None)
Quarter: 2008Q3

REPORT INFORMATION
  Report Type: 
  Country: None (occurrence: None)
  Receive Date: 20080808
  Receipt Date: 20080506
  Transmission Date: 20090109
  Serious: Yes (Other)
  Sender: FDA-Public Use
  Company Number: 08-000729

PATIENT
  Sex: Female

DRUGS (1)
  1. TACLONEX [Suspect]
     Dosage: TOPICAL
     Route: 061

REACTIONS (2)
  - SKIN BURNING SENSATION [None]
  - SKIN STRIAE [None]
